FAERS Safety Report 20920085 (Version 1)
Quarter: 2022Q2

REPORT INFORMATION
  Report Type: Spontaneous
  Country: US (occurrence: US)
  Receive Date: 20220606
  Receipt Date: 20220606
  Transmission Date: 20220720
  Serious: No
  Sender: FDA-Public Use
  Company Number: US-BRISTOL-MYERS SQUIBB COMPANY-2022-038159

PATIENT
  Age: 63 Year
  Sex: Male
  Weight: 93.8 kg

DRUGS (1)
  1. POMALYST [Suspect]
     Active Substance: POMALIDOMIDE
     Indication: Plasma cell myeloma
     Dosage: 1 CAPSULE BY MOUTH.?1ST SHIP DATE FROM ACCREDO-14-JUN-2021.
     Route: 048

REACTIONS (1)
  - Neutrophil count decreased [Unknown]
